FAERS Safety Report 15195841 (Version 1)
Quarter: 2018Q3

REPORT INFORMATION
  Report Type: Spontaneous
  Country: US (occurrence: US)
  Receive Date: 20180725
  Receipt Date: 20180725
  Transmission Date: 20181010
  Serious: No
  Sender: FDA-Public Use
  Company Number: US-PFIZER INC-2018295228

PATIENT
  Sex: Female

DRUGS (2)
  1. MENEST [Suspect]
     Active Substance: ESTROGENS, ESTERIFIED
     Indication: HOT FLUSH
     Dosage: 0.3 MG, UNK
  2. MENEST [Suspect]
     Active Substance: ESTROGENS, ESTERIFIED
     Indication: HOT FLUSH
     Dosage: UNK (CUTTING THEM IN HALF)

REACTIONS (2)
  - Incorrect dose administered [Unknown]
  - Headache [Unknown]
